FAERS Safety Report 25852231 (Version 1)
Quarter: 2025Q3

REPORT INFORMATION
  Report Type: Spontaneous
  Country: US (occurrence: None)
  Receive Date: 20250926
  Receipt Date: 20250926
  Transmission Date: 20251021
  Serious: Yes (Hospitalization)
  Sender: FDA-CTU
  Company Number: None

PATIENT
  Age: 69 Year
  Sex: Male
  Weight: 73.5 kg

DRUGS (3)
  1. FLUOROURACIL [Suspect]
     Active Substance: FLUOROURACIL
     Indication: Oesophageal adenocarcinoma
     Dates: end: 20250910
  2. CAMPTOSAR [Suspect]
     Active Substance: IRINOTECAN HYDROCHLORIDE
     Dates: end: 20250910
  3. ELOXATIN [Suspect]
     Active Substance: OXALIPLATIN
     Dates: end: 20250827

REACTIONS (8)
  - Constipation [None]
  - Asthenia [None]
  - Infrequent bowel movements [None]
  - Abdominal pain [None]
  - Volvulus [None]
  - Intestinal obstruction [None]
  - Large intestinal obstruction [None]
  - Fatigue [None]

NARRATIVE: CASE EVENT DATE: 20250915
